FAERS Safety Report 5835512-7 (Version None)
Quarter: 2008Q3

REPORT INFORMATION
  Report Type: 
  Country: None (occurrence: None)
  Receive Date: 20080806
  Receipt Date: 20080729
  Transmission Date: 20090109
  Serious: Yes (Hospitalization)
  Sender: FDA-Public Use
  Company Number: A0704383A

PATIENT
  Age: 60 Year
  Sex: Female
  Weight: 68.2 kg

DRUGS (9)
  1. IMITREX [Suspect]
     Indication: MIGRAINE
     Dosage: 100MG FOUR TIMES PER WEEK
     Route: 048
     Dates: start: 20071216, end: 20071216
  2. TOPAMAX [Concomitant]
     Indication: MIGRAINE PROPHYLAXIS
     Dosage: 100MG PER DAY
     Route: 048
     Dates: start: 20080214
  3. PLAVIX [Concomitant]
     Indication: CARDIOVASCULAR EVENT PROPHYLAXIS
     Dosage: 75MG PER DAY
     Route: 048
  4. PREMPRO [Concomitant]
  5. VYTORIN [Concomitant]
     Indication: HYPERCHOLESTEROLAEMIA
     Dates: start: 20040101
  6. VICODIN [Concomitant]
     Indication: MIGRAINE
  7. CELEBREX [Concomitant]
  8. TRIAMTERENE [Concomitant]
  9. HYDROCHLOROTHIAZIDE [Concomitant]

REACTIONS (10)
  - APHASIA [None]
  - BALANCE DISORDER [None]
  - DRUG ADMINISTRATION ERROR [None]
  - DYSARTHRIA [None]
  - MEMORY IMPAIRMENT [None]
  - MITRAL VALVE INCOMPETENCE [None]
  - MITRAL VALVE PROLAPSE [None]
  - NEOPLASM [None]
  - NODULE [None]
  - TRANSIENT ISCHAEMIC ATTACK [None]
